FAERS Safety Report 4794417-3 (Version None)
Quarter: 2005Q4

REPORT INFORMATION
  Report Type: 
  Country: None (occurrence: None)
  Receive Date: 20051011
  Receipt Date: 20050829
  Transmission Date: 20060501
  Serious: Yes (Hospitalization)
  Sender: FDA-Public Use
  Company Number: FR-ROCHE-415827

PATIENT
  Age: 41 Year
  Sex: Female

DRUGS (21)
  1. MYCOPHENOLATE MOFETIL [Suspect]
     Route: 065
     Dates: start: 20050221, end: 20050222
  2. MYCOPHENOLATE MOFETIL [Suspect]
     Route: 065
     Dates: start: 20050223, end: 20050223
  3. MYCOPHENOLATE MOFETIL [Suspect]
     Dosage: 1000MG AM AND 1500MG PM
     Route: 065
     Dates: start: 20050224, end: 20050224
  4. MYCOPHENOLATE MOFETIL [Suspect]
     Route: 065
     Dates: start: 20050225, end: 20050522
  5. MYCOPHENOLATE MOFETIL [Suspect]
     Dosage: 1500MG AM AND 1250MG PM
     Route: 065
     Dates: start: 20050523, end: 20050822
  6. MYCOPHENOLATE MOFETIL [Suspect]
     Route: 065
     Dates: start: 20050823
  7. CICLOSPORIN [Suspect]
     Route: 065
     Dates: start: 20050222
  8. METHYLPREDNISOLONE [Suspect]
     Dosage: DOSE TAPERED ACCORDING TO LOCAL PROTOCOL
     Route: 065
     Dates: start: 20050221, end: 20050227
  9. PREDNISOLONE [Suspect]
     Dosage: DOSE TAPERED ACCORDING TO LOCAL PROTOCOL.
     Route: 065
     Dates: start: 20050228
  10. COTRIMOXAZOLE [Concomitant]
     Dates: start: 20050222
  11. INSULINE [Concomitant]
     Dates: start: 20050222, end: 20050222
  12. FERRIC HYDROXIDE [Concomitant]
     Dates: start: 20050224, end: 20050320
  13. DARBEPOETIN ALFA [Concomitant]
     Dates: start: 20050224, end: 20050325
  14. ACYCLOVIR [Concomitant]
     Dates: start: 20050224, end: 20050225
  15. FUROSEMIDE [Concomitant]
     Dates: start: 20050228
  16. EPOETIN-BETA [Concomitant]
     Dates: start: 20050301
  17. FOLIC ACID [Concomitant]
     Dates: start: 20050302, end: 20050409
  18. PRISTINAMYCINE [Concomitant]
     Dates: start: 20050324, end: 20050416
  19. VANCOMYCIN [Concomitant]
     Dates: start: 20050324, end: 20050325
  20. TEICOPLANINE [Concomitant]
     Dates: start: 20050325, end: 20050416
  21. ATENOLOL [Concomitant]
     Dates: start: 20050523

REACTIONS (3)
  - ANASTOMOTIC STENOSIS [None]
  - RENAL ARTERY STENOSIS [None]
  - RENAL IMPAIRMENT [None]
